FAERS Safety Report 10155044 (Version 1)
Quarter: 2014Q2

REPORT INFORMATION
  Report Type: Spontaneous
  Country: AU (occurrence: AU)
  Receive Date: 20140506
  Receipt Date: 20140506
  Transmission Date: 20141212
  Serious: Yes (Hospitalization, Other)
  Sender: FDA-Public Use
  Company Number: AU-PFIZER INC-2014119393

PATIENT
  Age: 11 Year
  Sex: Male

DRUGS (3)
  1. LYRICA [Suspect]
     Indication: PAIN
     Dosage: 75 MG, DAILY
     Dates: start: 201402, end: 2014
  2. LYRICA [Suspect]
     Indication: HYPERSENSITIVITY
     Dosage: 125 MG, DAILY
     Dates: start: 2014, end: 2014
  3. LYRICA [Suspect]
     Dosage: 75 MG, DAILY
     Dates: start: 2014

REACTIONS (5)
  - Off label use [Unknown]
  - Hypoacusis [Unknown]
  - Tinnitus [Unknown]
  - Intentional self-injury [Unknown]
  - Agitation [Unknown]
